FAERS Safety Report 6656560-3 (Version None)
Quarter: 2010Q1

REPORT INFORMATION
  Report Type: 
  Country: None (occurrence: None)
  Receive Date: 20100329
  Receipt Date: 20100316
  Transmission Date: 20100710
  Serious: Yes (Hospitalization)
  Sender: FDA-Public Use
  Company Number: US-GENZYME-FABR-1001296

PATIENT
  Sex: Female

DRUGS (3)
  1. FABRAZYME [Suspect]
     Indication: FABRY'S DISEASE
     Dosage: 105 MG, Q2W
     Route: 042
     Dates: start: 20081118
  2. FABRAZYME [Suspect]
     Dosage: UNK
  3. CRESTOR [Concomitant]
     Indication: DRUG USE FOR UNKNOWN INDICATION

REACTIONS (3)
  - GASTROINTESTINAL DISORDER [None]
  - HEPATIC ENZYME INCREASED [None]
  - PAIN [None]
